FAERS Safety Report 22526921 (Version 1)
Quarter: 2023Q2

REPORT INFORMATION
  Report Type: Report from Study
  Country: US (occurrence: US)
  Receive Date: 20230606
  Receipt Date: 20230606
  Transmission Date: 20230721
  Serious: No
  Sender: FDA-Public Use
  Company Number: US-002147023-NVSC2023US126811

PATIENT
  Sex: Male
  Weight: 85.73 kg

DRUGS (5)
  1. COSENTYX [Suspect]
     Active Substance: SECUKINUMAB
     Indication: Psoriasis
     Route: 065
  2. CLINDAMYCIN [Suspect]
     Active Substance: CLINDAMYCIN
     Indication: Psoriasis
     Route: 065
  3. DOXYCYCLINE [Suspect]
     Active Substance: DOXYCYCLINE
     Indication: Psoriasis
     Route: 065
  4. ASPIRIN [Suspect]
     Active Substance: ASPIRIN
     Indication: Psoriasis
     Route: 065
  5. POTASSIUM [Suspect]
     Active Substance: POTASSIUM
     Indication: Psoriasis
     Route: 065

REACTIONS (8)
  - Hypertension [Unknown]
  - Swelling [Unknown]
  - Pain [Unknown]
  - Penile oedema [Unknown]
  - Skin plaque [Unknown]
  - Rash erythematous [Unknown]
  - Pruritus [Unknown]
  - Drug ineffective [Unknown]
